FAERS Safety Report 18526554 (Version 1)
Quarter: 2020Q4

REPORT INFORMATION
  Report Type: Spontaneous
  Country: JP (occurrence: JP)
  Receive Date: 20201120
  Receipt Date: 20201120
  Transmission Date: 20210114
  Serious: Yes (Other)
  Sender: FDA-Public Use
  Company Number: JP-PFIZER INC-2020453789

PATIENT
  Age: 8 Year
  Sex: Female

DRUGS (1)
  1. VORICONAZOLE. [Suspect]
     Active Substance: VORICONAZOLE
     Dosage: UNK

REACTIONS (5)
  - Altered state of consciousness [Recovered/Resolved]
  - Drug ineffective [Unknown]
  - Nervousness [Recovered/Resolved]
  - Hepatic function abnormal [Recovering/Resolving]
  - Dizziness [Recovered/Resolved]
